FAERS Safety Report 5894821-6 (Version None)
Quarter: 2008Q3

REPORT INFORMATION
  Report Type: 
  Country: None (occurrence: None)
  Receive Date: 20080924
  Receipt Date: 20080918
  Transmission Date: 20090109
  Serious: Yes (Other)
  Sender: FDA-Public Use
  Company Number: US-BAYER-200813658BCC

PATIENT
  Age: 60 Year
  Sex: Male
  Weight: 75 kg

DRUGS (2)
  1. PHILLIPS' MILK OF MAGNESIA CHERRY [Suspect]
     Indication: ABDOMINAL DISTENSION
     Route: 048
  2. GLUCOPHAGE [Concomitant]

REACTIONS (5)
  - CHILLS [None]
  - HEADACHE [None]
  - NAUSEA [None]
  - NEPHROLITHIASIS [None]
  - PYREXIA [None]
